FAERS Safety Report 6006218-9 (Version None)
Quarter: 2008Q4

REPORT INFORMATION
  Report Type: 
  Country: None (occurrence: None)
  Receive Date: 20081216
  Receipt Date: 20081216
  Transmission Date: 20090506
  Serious: Yes (Other)
  Sender: FDA-Public Use
  Company Number: None

PATIENT
  Sex: Female
  Weight: 58.9676 kg

DRUGS (1)
  1. GABITRIL [Suspect]
     Indication: OBSESSIVE-COMPULSIVE DISORDER
     Dosage: 4MG 1/DAY PO
     Route: 048
     Dates: start: 20020101, end: 20070201

REACTIONS (1)
  - CONVULSION [None]
